FAERS Safety Report 6005601-5 (Version None)
Quarter: 2008Q4

REPORT INFORMATION
  Report Type: 
  Country: None (occurrence: None)
  Receive Date: 20081217
  Receipt Date: 20081209
  Transmission Date: 20090506
  Serious: Yes (Other)
  Sender: FDA-Public Use
  Company Number: IT-PFIZER INC-2008151517

PATIENT

DRUGS (1)
  1. QUINAPRIL HCL + HYDROCHLOROTHIAZIDE [Suspect]

REACTIONS (1)
  - KAPOSI'S SARCOMA [None]
